FAERS Safety Report 11740601 (Version 2)
Quarter: 2015Q4

REPORT INFORMATION
  Report Type: Spontaneous
  Country: US (occurrence: US)
  Receive Date: 20151110
  Receipt Date: 20151120
  Transmission Date: 20160304
  Serious: No
  Sender: FDA-Public Use
  Company Number: US-ELI_LILLY_AND_COMPANY-US201203000790

PATIENT
  Sex: Female
  Weight: 51.7 kg

DRUGS (3)
  1. FORTEO [Suspect]
     Active Substance: TERIPARATIDE
     Indication: OSTEOPOROSIS
     Dosage: 20 UG, QD
     Dates: start: 20120215
  2. FORTEO [Suspect]
     Active Substance: TERIPARATIDE
     Dosage: 20 UG, QD
  3. FORTEO [Suspect]
     Active Substance: TERIPARATIDE
     Dosage: 20 UG, QD

REACTIONS (10)
  - Carpal tunnel syndrome [Unknown]
  - Rash [Unknown]
  - Psoriasis [Unknown]
  - Weight decreased [Recovered/Resolved]
  - Arthralgia [Unknown]
  - Chest discomfort [Unknown]
  - Pain in extremity [Recovered/Resolved]
  - Chest pain [Unknown]
  - Gastrointestinal ulcer [Unknown]
  - Pain in jaw [Recovered/Resolved]
